APPROVED DRUG PRODUCT: AMINOPHYLLINE
Active Ingredient: AMINOPHYLLINE
Strength: 25MG/ML
Dosage Form/Route: INJECTABLE;INJECTION
Application: A087431 | Product #001
Applicant: LYPHOMED DIV FUJISAWA USA INC
Approved: Approved Prior to Jan 1, 1982 | RLD: No | RS: No | Type: DISCN